FAERS Safety Report 6691582-8 (Version None)
Quarter: 2010Q2

REPORT INFORMATION
  Report Type: 
  Country: None (occurrence: None)
  Receive Date: 20100422
  Receipt Date: 20100412
  Transmission Date: 20101027
  Serious: No
  Sender: FDA-Public Use
  Company Number: US-JNJFOC-20100403623

PATIENT
  Sex: Female
  Weight: 90.72 kg

DRUGS (4)
  1. DURAGESIC-100 [Suspect]
     Indication: BACK PAIN
     Route: 062
  2. DURAGESIC-100 [Suspect]
     Route: 062
  3. OXYCODONE [Concomitant]
     Indication: PAIN
     Route: 048
  4. PRILOSEC [Concomitant]
     Indication: GASTRIC DISORDER
     Route: 048

REACTIONS (3)
  - APPLICATION SITE RASH [None]
  - DRUG INEFFECTIVE [None]
  - WRONG TECHNIQUE IN DRUG USAGE PROCESS [None]
